FAERS Safety Report 5008236-6 (Version None)
Quarter: 2006Q2

REPORT INFORMATION
  Report Type: 
  Country: None (occurrence: None)
  Receive Date: 20060523
  Receipt Date: 20060516
  Transmission Date: 20061013
  Serious: Yes (Hospitalization)
  Sender: FDA-Public Use
  Company Number: 2006PK01095

PATIENT
  Sex: Female
  Weight: 78 kg

DRUGS (11)
  1. SEROQUEL [Suspect]
     Indication: SCHIZOPHRENIA
     Route: 048
     Dates: start: 20031101, end: 20060302
  2. SEROQUEL [Suspect]
     Indication: PETIT MAL EPILEPSY
     Route: 048
     Dates: start: 20031101, end: 20060302
  3. VALPROATE SODIUM [Suspect]
     Indication: SCHIZOPHRENIA
     Route: 048
     Dates: start: 20050101, end: 20060224
  4. VALPROATE SODIUM [Suspect]
     Indication: PETIT MAL EPILEPSY
     Route: 048
     Dates: start: 20050101, end: 20060224
  5. SOLIAN [Suspect]
     Indication: SCHIZOPHRENIA
     Route: 048
     Dates: start: 20030801, end: 20060302
  6. SOLIAN [Suspect]
     Indication: PETIT MAL EPILEPSY
     Route: 048
     Dates: start: 20030801, end: 20060302
  7. NEUROCIL [Suspect]
     Indication: SCHIZOPHRENIA
     Route: 048
     Dates: start: 20020801, end: 20060302
  8. NEUROCIL [Suspect]
     Indication: PETIT MAL EPILEPSY
     Route: 048
     Dates: start: 20020801, end: 20060302
  9. PANTOZOL [Concomitant]
     Indication: PROPHYLAXIS
     Route: 048
     Dates: start: 20051206, end: 20060302
  10. PANTOZOL [Concomitant]
     Route: 048
     Dates: start: 20060227
  11. MCP [Concomitant]
     Route: 048
     Dates: start: 20051219, end: 20060203

REACTIONS (2)
  - DRUG TOXICITY [None]
  - RENAL VASCULITIS [None]
